FAERS Safety Report 7473456-8 (Version None)
Quarter: 2011Q2

REPORT INFORMATION
  Report Type: 
  Country: None (occurrence: None)
  Receive Date: 20110511
  Receipt Date: 20110502
  Transmission Date: 20111010
  Serious: Yes (Hospitalization, Other)
  Sender: FDA-Public Use
  Company Number: US-ASTRAZENECA-2011SE22965

PATIENT
  Age: 56 Year
  Sex: Male

DRUGS (2)
  1. NEXIUM [Suspect]
     Route: 048
  2. LASIX [Concomitant]
     Indication: DEHYDRATION

REACTIONS (5)
  - CHOLECYSTECTOMY [None]
  - DIABETES MELLITUS [None]
  - RENAL FAILURE [None]
  - FATIGUE [None]
  - HYPERSOMNIA [None]
